FAERS Safety Report 12658915 (Version 1)
Quarter: 2016Q3

REPORT INFORMATION
  Report Type: Spontaneous
  Country: US (occurrence: US)
  Receive Date: 20160817
  Receipt Date: 20160817
  Transmission Date: 20161109
  Serious: No
  Sender: FDA-Public Use
  Company Number: US-BEH-2016072349

PATIENT
  Sex: Female
  Weight: 90.7 kg

DRUGS (35)
  1. HIZENTRA [Suspect]
     Active Substance: HUMAN IMMUNOGLOBULIN G
     Indication: COMBINED IMMUNODEFICIENCY
     Dosage: UNK
     Route: 058
  2. BUPAP [Concomitant]
     Active Substance: ACETAMINOPHEN\BUTALBITAL
  3. TOPAMAX [Concomitant]
     Active Substance: TOPIRAMATE
  4. EPIPEN [Concomitant]
     Active Substance: EPINEPHRINE
  5. MUCINEX [Concomitant]
     Active Substance: GUAIFENESIN
  6. ALENDRONATE [Concomitant]
     Active Substance: ALENDRONATE SODIUM
  7. AMLODIPINE [Concomitant]
     Active Substance: AMLODIPINE BESYLATE
  8. FLUTICASONE [Concomitant]
     Active Substance: FLUTICASONE\FLUTICASONE PROPIONATE
  9. LASIX [Concomitant]
     Active Substance: FUROSEMIDE
  10. ZOLPIDEM [Concomitant]
     Active Substance: ZOLPIDEM\ZOLPIDEM TARTRATE
  11. TRACLEER [Concomitant]
     Active Substance: BOSENTAN
  12. SINGULAIR [Concomitant]
     Active Substance: MONTELUKAST SODIUM
  13. REVATIO [Concomitant]
     Active Substance: SILDENAFIL CITRATE
  14. LANOXIN [Concomitant]
     Active Substance: DIGOXIN
  15. OMEPRAZOLE. [Concomitant]
     Active Substance: OMEPRAZOLE
  16. HEPARIN [Concomitant]
     Active Substance: HEPARIN SODIUM
  17. HIZENTRA [Suspect]
     Active Substance: HUMAN IMMUNOGLOBULIN G
     Dosage: 10 G, QW
     Route: 058
     Dates: start: 20130605
  18. DIPHENHYDRAMINE. [Concomitant]
     Active Substance: DIPHENHYDRAMINE
  19. DETROL [Concomitant]
     Active Substance: TOLTERODINE TARTRATE
  20. VICKS NYQUIL [Concomitant]
     Active Substance: ACETAMINOPHEN\DEXTROMETHORPHAN HYDROBROMIDE\DOXYLAMINE SUCCINATE
  21. CELEBREX [Concomitant]
     Active Substance: CELECOXIB
  22. HYDROXYCHLOROQUINE [Concomitant]
     Active Substance: HYDROXYCHLOROQUINE
  23. METOLAZONE. [Concomitant]
     Active Substance: METOLAZONE
  24. POTASSIUM [Concomitant]
     Active Substance: POTASSIUM
  25. RESTASIS [Concomitant]
     Active Substance: CYCLOSPORINE
  26. OXYGEN. [Concomitant]
     Active Substance: OXYGEN
  27. CEFAZOLIN [Concomitant]
     Active Substance: CEFAZOLIN
  28. SPIRONOLACTONE. [Concomitant]
     Active Substance: SPIRONOLACTONE
  29. WARFARIN [Concomitant]
     Active Substance: WARFARIN
  30. HIZENTRA [Suspect]
     Active Substance: HUMAN IMMUNOGLOBULIN G
     Dosage: UNK
     Route: 058
  31. ACETAMINOPHEN. [Concomitant]
     Active Substance: ACETAMINOPHEN
  32. ALLEGRA [Concomitant]
     Active Substance: FEXOFENADINE HYDROCHLORIDE
  33. LEVOTHYROXINE. [Concomitant]
     Active Substance: LEVOTHYROXINE
  34. CALCIUM +D                         /00944201/ [Concomitant]
     Active Substance: CALCIUM CARBONATE\CHOLECALCIFEROL
  35. ESTRADIOL W/NORETHISTERONE [Concomitant]

REACTIONS (1)
  - Urinary tract infection [Unknown]
